FAERS Safety Report 6219021-1 (Version None)
Quarter: 2009Q2

REPORT INFORMATION
  Report Type: 
  Country: None (occurrence: None)
  Receive Date: 20090608
  Receipt Date: 20090529
  Transmission Date: 20091009
  Serious: Yes (Hospitalization)
  Sender: FDA-Public Use
  Company Number: FR-PFIZER INC-2009181018

PATIENT
  Age: 58 Year

DRUGS (2)
  1. CELEBREX [Suspect]
     Indication: ANKYLOSING SPONDYLITIS
     Dosage: 200 MG, 1X/DAY
     Route: 048
     Dates: start: 20090124, end: 20090127
  2. CELEBREX [Suspect]
     Indication: BACK PAIN

REACTIONS (1)
  - GASTROINTESTINAL NECROSIS [None]
